FAERS Safety Report 4952020-6 (Version None)
Quarter: 2006Q1

REPORT INFORMATION
  Report Type: 
  Country: None (occurrence: None)
  Receive Date: 20060320
  Receipt Date: 20060310
  Transmission Date: 20060701
  Serious: Yes (Other)
  Sender: FDA-Public Use
  Company Number: 2006034115

PATIENT
  Sex: Female

DRUGS (7)
  1. XALATAN [Suspect]
     Indication: GLAUCOMA
     Dosage: OPHTHALMIC
     Route: 047
     Dates: start: 19940101
  2. INSULIN [Concomitant]
  3. ADALAT [Concomitant]
  4. SIMVASTATIN [Concomitant]
  5. TAMARINE (HERBAL EXTRACTS NOS, SENNA DRY EXTRACT) [Concomitant]
  6. MAALOX (ALUMINUM HYDROXIDE GEL, MAGNESIUM HYDROXIDE) [Concomitant]
  7. SOMALGIN (ACETYLSALICYLIC ACID, ALUMINUM GLYCINATE, MAGNESIUM CARBONAT [Concomitant]

REACTIONS (3)
  - BLINDNESS UNILATERAL [None]
  - CONDITION AGGRAVATED [None]
  - GLAUCOMA [None]
